FAERS Safety Report 9409428 (Version 2)
Quarter: 2014Q1

REPORT INFORMATION
  Report Type: Report from Study
  Country: DE (occurrence: DE)
  Receive Date: 20130719
  Receipt Date: 20140320
  Transmission Date: 20141002
  Serious: Yes (Hospitalization, Other)
  Sender: FDA-Public Use
  Company Number: DE-ROCHE-1225925

PATIENT
  Age: 79 Year
  Sex: Female
  Weight: 58 kg

DRUGS (12)
  1. BEVACIZUMAB [Suspect]
     Indication: COLORECTAL CANCER METASTATIC
     Route: 042
     Dates: start: 20130502
  2. BEVACIZUMAB [Suspect]
     Route: 042
     Dates: start: 20130620
  3. CAPECITABINE [Suspect]
     Indication: COLORECTAL CANCER METASTATIC
     Dosage: ON DAY 1-4 OF 3 WEEK CYCLE
     Route: 048
     Dates: start: 20130620, end: 20130706
  4. FLUOROURACIL [Suspect]
     Indication: COLORECTAL CANCER METASTATIC
     Route: 042
     Dates: start: 20130502, end: 20130504
  5. OXALIPLATIN [Suspect]
     Indication: COLORECTAL CANCER METASTATIC
     Route: 042
     Dates: start: 20130502
  6. OXALIPLATIN [Suspect]
     Route: 042
     Dates: start: 20130620
  7. FERRO SANOL [Concomitant]
     Indication: IRON DEFICIENCY
     Route: 048
  8. BISOHEXAL [Concomitant]
     Indication: HYPERTENSION
     Route: 048
  9. DIOVAN [Concomitant]
     Indication: HYPERTENSION
     Route: 048
  10. MONO-EMBOLEX [Concomitant]
     Route: 058
  11. PANTOZOL (GERMANY) [Concomitant]
     Indication: PROPHYLAXIS
     Route: 048
  12. CONCOR [Concomitant]
     Indication: HYPERTENSION
     Route: 065

REACTIONS (5)
  - Diarrhoea [Recovered/Resolved]
  - Vomiting [Recovered/Resolved]
  - Renal failure [Recovered/Resolved]
  - Paraesthesia [Not Recovered/Not Resolved]
  - Dehydration [Recovered/Resolved]
